FAERS Safety Report 7974874-1 (Version None)
Quarter: 2011Q4

REPORT INFORMATION
  Report Type: 
  Country: None (occurrence: None)
  Receive Date: 20111213
  Receipt Date: 20111207
  Transmission Date: 20120403
  Serious: Yes (Hospitalization)
  Sender: FDA-Public Use
  Company Number: UG-GILEAD-2011-0047854

PATIENT
  Sex: Male

DRUGS (5)
  1. ALUVIA [Suspect]
     Indication: HIV INFECTION
     Dosage: 500 MG, BID
     Route: 048
     Dates: start: 20110526
  2. EMTRICITABINE/TENOFOVIR DISOPROXIL FUMARATE [Suspect]
     Indication: HIV INFECTION
     Dosage: 500 MG, QOD
     Route: 048
     Dates: start: 20110526
  3. COTRIM [Concomitant]
     Indication: PROPHYLAXIS
     Dosage: UNK, QOD
     Dates: start: 20080501
  4. CEFTRIAXONE [Concomitant]
     Indication: BACTERIAL INFECTION
     Dosage: UNK
     Route: 042
     Dates: start: 20111125
  5. METOCLOPRAMIDE [Concomitant]
     Indication: NAUSEA
     Dosage: UNK
     Route: 042

REACTIONS (22)
  - NYSTAGMUS [None]
  - CEREBRAL TOXOPLASMOSIS [None]
  - MENINGITIS CRYPTOCOCCAL [None]
  - DELIRIUM [None]
  - VOMITING [None]
  - LACUNAR INFARCTION [None]
  - DECREASED APPETITE [None]
  - HYPOTONIA [None]
  - DYSSTASIA [None]
  - CONFUSIONAL STATE [None]
  - IMMUNE RECONSTITUTION SYNDROME [None]
  - SEPSIS [None]
  - SPEECH DISORDER [None]
  - ASTHENIA [None]
  - MUSCULAR WEAKNESS [None]
  - HEMIPARESIS [None]
  - HEADACHE [None]
  - VISUAL IMPAIRMENT [None]
  - ENCEPHALITIS CYTOMEGALOVIRUS [None]
  - MENINGITIS TUBERCULOUS [None]
  - CEREBRAL ATROPHY [None]
  - DIZZINESS [None]
